FAERS Safety Report 18672195 (Version 1)
Quarter: 2020Q4

REPORT INFORMATION
  Report Type: Spontaneous
  Country: CA (occurrence: CA)
  Receive Date: 20201229
  Receipt Date: 20201229
  Transmission Date: 20210114
  Serious: Yes (Other)
  Sender: FDA-Public Use
  Company Number: CA-ROCHE-2740393

PATIENT
  Age: 38 Year
  Sex: Female

DRUGS (13)
  1. ACTEMRA [Suspect]
     Active Substance: TOCILIZUMAB
     Route: 058
  2. PREDNISONE. [Concomitant]
     Active Substance: PREDNISONE
  3. ACTEMRA [Suspect]
     Active Substance: TOCILIZUMAB
     Indication: RHEUMATOID ARTHRITIS
     Route: 058
  4. METHOTREXATE. [Suspect]
     Active Substance: METHOTREXATE
     Indication: PRODUCT USED FOR UNKNOWN INDICATION
     Route: 065
  5. ACETAMINOPHEN;CODEINE PHOSPHATE [Concomitant]
     Active Substance: ACETAMINOPHEN\CODEINE PHOSPHATE
  6. MAGNESIUM [Concomitant]
     Active Substance: MAGNESIUM
  7. INDACATEROL MALEATE [Concomitant]
     Active Substance: INDACATEROL MALEATE
     Route: 055
  8. INSULIN ASPART [Concomitant]
     Active Substance: INSULIN ASPART
  9. OMNARIS [Concomitant]
     Active Substance: CICLESONIDE
  10. CHROMIUM [Concomitant]
     Active Substance: CHROMIC CHLORIDE\CHROMIUM
  11. DEXILANT [Concomitant]
     Active Substance: DEXLANSOPRAZOLE
  12. SELENIUM [Concomitant]
     Active Substance: SELENIUM
  13. ALVESCO [Concomitant]
     Active Substance: CICLESONIDE
     Route: 055

REACTIONS (4)
  - Bronchitis [Unknown]
  - Neutropenia [Unknown]
  - Respiratory tract infection [Unknown]
  - Product dose omission issue [Unknown]
